FAERS Safety Report 6062056-2 (Version None)
Quarter: 2009Q1

REPORT INFORMATION
  Report Type: 
  Country: None (occurrence: None)
  Receive Date: 20090202
  Receipt Date: 20090122
  Transmission Date: 20090719
  Serious: Yes (Death, Hospitalization)
  Sender: FDA-Public Use
  Company Number: US-BAXTER-2008BH014052

PATIENT
  Age: 81 Year
  Sex: Male

DRUGS (4)
  1. DIANEAL [Suspect]
     Indication: PERITONEAL DIALYSIS
     Route: 033
     Dates: start: 20061219, end: 20071008
  2. DIANEAL [Suspect]
     Route: 033
     Dates: start: 20071008
  3. DIANEAL [Suspect]
     Route: 033
     Dates: end: 20081219
  4. HEPARIN [Concomitant]
     Indication: DRUG USE FOR UNKNOWN INDICATION
     Route: 065

REACTIONS (3)
  - CARDIAC ARREST [None]
  - FAILURE TO THRIVE [None]
  - HYPOTENSION [None]
